FAERS Safety Report 11655585 (Version 2)
Quarter: 2015Q4

REPORT INFORMATION
  Report Type: Spontaneous
  Country: JP (occurrence: JP)
  Receive Date: 20151023
  Receipt Date: 20151023
  Transmission Date: 20160304
  Serious: Yes (Hospitalization)
  Sender: FDA-Public Use
  Company Number: JP-AKORN PHARMACEUTICALS-2015AKN00608

PATIENT
  Age: 61 Year
  Sex: Male

DRUGS (10)
  1. FOIPAN [Concomitant]
     Active Substance: CAMOSTAT MESYLATE
     Dosage: UNK TABLETS, UNK
  2. COSPANON [Concomitant]
     Active Substance: FLOPROPIONE
     Dosage: UNK TABLETS, UNK
     Dates: start: 20150609, end: 20150710
  3. GASRICK D [Concomitant]
     Active Substance: FAMOTIDINE
     Dosage: UNK TABLETS, UNK
     Dates: start: 20150604
  4. BERIZYM [Concomitant]
     Active Substance: CELLULASE\DIASTASE\LIPASE
  5. CAMOSTAT MESYLATE [Concomitant]
     Active Substance: CAMOSTAT MESYLATE
     Dosage: UNK TABLETS, UNK
     Dates: start: 20150604
  6. ZIOPTAN [Suspect]
     Active Substance: TAFLUPROST
     Indication: OPEN ANGLE GLAUCOMA
     Dosage: 2 GTT, 1X/DAY
     Dates: start: 20121114
  7. GASTER [Concomitant]
     Active Substance: FAMOTIDINE
     Dosage: WAFER
     Dates: start: 20150604
  8. AMLODIN OD [Concomitant]
     Active Substance: AMLODIPINE BESYLATE
     Dosage: UNK TABLETS, UNK
     Dates: start: 20150604
  9. NESINA [Concomitant]
     Active Substance: ALOGLIPTIN BENZOATE
     Dosage: UNK TABLETS, UNK
     Dates: start: 20150604
  10. AMLODIPINE [Concomitant]
     Active Substance: AMLODIPINE BESYLATE
     Dosage: UNK TABLETS, UNK
     Dates: start: 20150604

REACTIONS (4)
  - Arthralgia [Not Recovered/Not Resolved]
  - Seasonal allergy [Unknown]
  - Calculus urinary [Recovering/Resolving]
  - Asthenopia [Not Recovered/Not Resolved]

NARRATIVE: CASE EVENT DATE: 20140217
